FAERS Safety Report 5805074-9 (Version None)
Quarter: 2008Q3

REPORT INFORMATION
  Report Type: 
  Country: None (occurrence: None)
  Receive Date: 20080709
  Receipt Date: 20080630
  Transmission Date: 20090109
  Serious: Yes (Other)
  Sender: FDA-Public Use
  Company Number: BR-PFIZER INC-2008055501

PATIENT
  Sex: Female
  Weight: 63 kg

DRUGS (5)
  1. LIPITOR [Suspect]
     Indication: BLOOD CHOLESTEROL INCREASED
     Route: 048
     Dates: start: 20010424, end: 20020510
  2. LIPITOR [Suspect]
     Indication: BLOOD TRIGLYCERIDES INCREASED
  3. CALCIUM [Concomitant]
     Route: 048
  4. CENTRUM [Concomitant]
     Route: 048
  5. FOSAMAX [Concomitant]
     Route: 048

REACTIONS (6)
  - BACK PAIN [None]
  - MUSCULOSKELETAL PAIN [None]
  - OSTEOPOROSIS [None]
  - PAIN IN EXTREMITY [None]
  - SCOLIOSIS [None]
  - TENDONITIS [None]
